FAERS Safety Report 5720826-1 (Version None)
Quarter: 2008Q2

REPORT INFORMATION
  Report Type: 
  Country: None (occurrence: None)
  Receive Date: 20080423
  Receipt Date: 20070925
  Transmission Date: 20081010
  Serious: Yes (Hospitalization)
  Sender: FDA-Public Use
  Company Number: 248372

PATIENT
  Sex: Female
  Weight: 48.1 kg

DRUGS (3)
  1. AVASTIN [Suspect]
     Indication: BREAST CANCER METASTATIC
     Dosage: 10 MG/KG, Q3W, INTRAVENOUS
     Route: 042
     Dates: start: 20070212, end: 20070730
  2. XELODA [Concomitant]
  3. ZOMETA [Concomitant]

REACTIONS (2)
  - CARDIAC FAILURE CONGESTIVE [None]
  - WEIGHT DECREASED [None]
